FAERS Safety Report 7034530-3 (Version None)
Quarter: 2010Q4

REPORT INFORMATION
  Report Type: 
  Country: None (occurrence: None)
  Receive Date: 20101008
  Receipt Date: 20100927
  Transmission Date: 20110411
  Serious: Yes (Hospitalization)
  Sender: FDA-Public Use
  Company Number: DE-JNJFOC-20100907467

PATIENT
  Age: 62 Year
  Sex: Female
  Weight: 89 kg

DRUGS (4)
  1. USTEKINUMAB [Suspect]
     Indication: PSORIASIS
     Route: 058
  2. USTEKINUMAB [Suspect]
     Route: 058
  3. USTEKINUMAB [Suspect]
     Route: 058
  4. METHOTREXATE [Suspect]
     Indication: PSORIASIS

REACTIONS (1)
  - CEREBROVASCULAR ACCIDENT [None]
